FAERS Safety Report 7577071-7 (Version None)
Quarter: 2011Q2

REPORT INFORMATION
  Report Type: 
  Country: None (occurrence: None)
  Receive Date: 20110628
  Receipt Date: 20110531
  Transmission Date: 20111010
  Serious: Yes (Hospitalization)
  Sender: FDA-Public Use
  Company Number: US-BAYER-201025613NA

PATIENT
  Age: 35 Year
  Sex: Female
  Weight: 134 kg

DRUGS (24)
  1. YASMIN [Suspect]
     Indication: PREMENSTRUAL SYNDROME
     Dosage: UNK
     Dates: start: 20071029, end: 20080525
  2. YAZ [Suspect]
     Indication: PRODUCT USED FOR UNKNOWN INDICATION
     Dosage: UNK
     Dates: start: 20071029, end: 20080525
  3. ZOLOFT [Concomitant]
     Indication: ANGER
  4. NODOZ [Concomitant]
     Dosage: UNK
     Dates: start: 20080519
  5. ZOLOFT [Concomitant]
     Indication: DEPRESSION
     Dosage: 50 MG, UNK
     Dates: start: 19980101
  6. CEPHALEXIN [Concomitant]
     Dosage: 500 MG, UNK
     Dates: start: 20071204
  7. CODEINE [Concomitant]
     Dosage: UNK
     Dates: start: 20080218
  8. POTASSIUM [Concomitant]
     Dosage: UNK UNK, QD
  9. OMEGA 3 FATTY ACIDS [Concomitant]
     Indication: HYPERCHOLESTEROLAEMIA
     Dosage: 120 NOT APPL., UNK
     Dates: start: 20080101
  10. BENEFIBER [Concomitant]
     Dosage: 1 CAPSULE
     Route: 048
  11. AMARYL [Concomitant]
     Dosage: 4 MG, UNK
     Route: 048
     Dates: start: 20080328
  12. PHENERGAN HCL [Concomitant]
     Dosage: UNK
     Dates: start: 20080218
  13. PROMETHAZINE VC PLAIN [Concomitant]
     Dosage: UNK
     Route: 048
     Dates: start: 20071120
  14. LAVASA [Concomitant]
     Dosage: 1 TABLET
     Route: 048
  15. ALBUTEROL SULFATE AUTOHALER [Concomitant]
     Dosage: UNK UNK, PRN
     Route: 055
  16. MEDROXYPROGESTERONE [Concomitant]
     Dosage: UNK
     Dates: start: 20080121
  17. DIETARY SUPPLEMENTS [Concomitant]
  18. FLUCONAZOLE [Concomitant]
     Dosage: 150 MG, UNK
     Dates: start: 20080325
  19. BIAXIN [Concomitant]
     Indication: SINOBRONCHITIS
     Dosage: UNK
     Route: 048
     Dates: start: 20080218
  20. IMITREX [Concomitant]
     Indication: MIGRAINE
     Dosage: UNK UNK, PRN
  21. METFORMIN HCL [Concomitant]
     Indication: DIABETES MELLITUS
     Dosage: UNK
     Dates: start: 20080101
  22. AMOXICILLIN [Concomitant]
     Dosage: 875 MG, UNK
     Dates: start: 20080416
  23. IBUPROFEN [Concomitant]
     Dosage: 600 MG, UNK
     Dates: start: 20080519
  24. GLUCOPHAGE [Concomitant]
     Dosage: 500 MG, UNK
     Route: 048

REACTIONS (5)
  - OEDEMA PERIPHERAL [None]
  - PAIN IN EXTREMITY [None]
  - DEEP VEIN THROMBOSIS [None]
  - JOINT SWELLING [None]
  - JOINT SPRAIN [None]
